FAERS Safety Report 9850009 (Version 1)
Quarter: 2014Q1

REPORT INFORMATION
  Report Type: Spontaneous
  Country: US (occurrence: None)
  Receive Date: 20140127
  Receipt Date: 20140127
  Transmission Date: 20141002
  Serious: Yes (Other)
  Sender: FDA-Public Use
  Company Number: None

PATIENT
  Age: 68 Year
  Sex: Male

DRUGS (1)
  1. ZYTIGA [Suspect]
     Indication: PAIN
     Route: 048
     Dates: start: 20140123, end: 20140123

REACTIONS (2)
  - Burning sensation [None]
  - Musculoskeletal stiffness [None]
